FAERS Safety Report 7918941-7 (Version None)
Quarter: 2011Q4

REPORT INFORMATION
  Report Type: 
  Country: None (occurrence: None)
  Receive Date: 20111116
  Receipt Date: 20111111
  Transmission Date: 20120403
  Serious: Yes (Other)
  Sender: FDA-Public Use
  Company Number: DE-ASTRAZENECA-2011SE68699

PATIENT

DRUGS (2)
  1. BRILIQUE [Suspect]
     Route: 048
  2. BETABLOCKER [Suspect]

REACTIONS (1)
  - BRADYCARDIA [None]
